FAERS Safety Report 13188441 (Version 1)
Quarter: 2017Q1

REPORT INFORMATION
  Report Type: Spontaneous
  Country: US (occurrence: US)
  Receive Date: 20170203
  Receipt Date: 20170203
  Transmission Date: 20170428
  Serious: Yes (Other)
  Sender: FDA-Public Use
  Company Number: None

PATIENT
  Age: 6 Year
  Sex: Female
  Weight: 27 kg

DRUGS (2)
  1. SINGULAIR [Suspect]
     Active Substance: MONTELUKAST SODIUM
     Indication: COUGH
     Dosage: ?          QUANTITY:1 TABLET(S);?
     Route: 048
     Dates: start: 20161101, end: 20170203
  2. KIDS MULTI VITAMIN [Concomitant]

REACTIONS (4)
  - Hyperhidrosis [None]
  - Sleep terror [None]
  - Middle insomnia [None]
  - Hallucination, visual [None]

NARRATIVE: CASE EVENT DATE: 20170202
